FAERS Safety Report 4657565-4 (Version None)
Quarter: 2005Q2

REPORT INFORMATION
  Report Type: 
  Country: None (occurrence: None)
  Receive Date: 20050506
  Receipt Date: 20050421
  Transmission Date: 20051028
  Serious: Yes (Other)
  Sender: FDA-Public Use
  Company Number: 2000545

PATIENT
  Age: 44 Year
  Sex: Male
  Weight: 81.36 kg

DRUGS (4)
  1. KEPPRA [Suspect]
     Indication: CONVULSION
     Dosage: 500 MG 2/D PO
     Route: 048
     Dates: start: 20020101
  2. KEPPRA [Suspect]
     Indication: CONVULSION
     Dosage: 1500 MG 2/D
  3. TOPAMAX [Concomitant]
  4. ZONISAMIDE [Concomitant]

REACTIONS (18)
  - ASTHENIA [None]
  - BLOOD CREATINE PHOSPHOKINASE INCREASED [None]
  - CUTIS LAXA [None]
  - DYSARTHRIA [None]
  - EYELID PTOSIS [None]
  - HYPOAESTHESIA [None]
  - MUSCLE ATROPHY [None]
  - MUSCLE CONTRACTIONS INVOLUNTARY [None]
  - MUSCLE SPASMS [None]
  - MUSCLE TWITCHING [None]
  - NYSTAGMUS [None]
  - PERIPHERAL SENSORY NEUROPATHY [None]
  - POLYNEUROPATHY [None]
  - SENSORY LOSS [None]
  - SLEEP DISORDER [None]
  - TONGUE DISORDER [None]
  - VISION BLURRED [None]
  - WEIGHT DECREASED [None]
